FAERS Safety Report 4305471-7 (Version None)
Quarter: 2004Q1

REPORT INFORMATION
  Report Type: 
  Country: None (occurrence: None)
  Receive Date: 20040225
  Receipt Date: 20040213
  Transmission Date: 20041129
  Serious: Yes (Hospitalization, Other)
  Sender: FDA-Public Use
  Company Number: US-JNJFOC-20031204182

PATIENT
  Age: 36 Year
  Sex: Female
  Weight: 54.4316 kg

DRUGS (6)
  1. REMICADE [Suspect]
     Indication: CROHN'S DISEASE
     Dosage: INTRAVENOUS
     Route: 042
     Dates: start: 20000815
  2. REMICADE [Suspect]
     Indication: CROHN'S DISEASE
     Dosage: INTRAVENOUS
     Route: 042
     Dates: start: 20000901
  3. PREDNISONE [Suspect]
     Indication: CROHN'S DISEASE
  4. PENTASA [Concomitant]
  5. LOMOTIL [Concomitant]
  6. PROZAC [Concomitant]

REACTIONS (37)
  - ABDOMINAL HAEMATOMA [None]
  - ABORTION SPONTANEOUS [None]
  - ANAEMIA [None]
  - ATELECTASIS [None]
  - BLOOD POTASSIUM DECREASED [None]
  - COMPLICATIONS OF MATERNAL EXPOSURE TO THERAPEUTIC DRUGS [None]
  - CONDITION AGGRAVATED [None]
  - CROHN'S DISEASE [None]
  - DEPRESSION [None]
  - DNA ANTIBODY POSITIVE [None]
  - DYSPNOEA [None]
  - DYSPNOEA EXERTIONAL [None]
  - FATIGUE [None]
  - HYPERHIDROSIS [None]
  - HYPERTENSION [None]
  - ILEAL STENOSIS [None]
  - ILEUS [None]
  - INCISIONAL HERNIA [None]
  - LUPUS-LIKE SYNDROME [None]
  - MATERNAL DRUGS AFFECTING FOETUS [None]
  - MUSCLE CRAMP [None]
  - MYALGIA [None]
  - MYOPATHY [None]
  - NAUSEA [None]
  - PLEURAL EFFUSION [None]
  - POST PROCEDURAL HAEMATOMA [None]
  - POST PROCEDURAL HAEMORRHAGE [None]
  - PROCEDURAL HYPERTENSION [None]
  - RENAL FAILURE ACUTE [None]
  - RENAL TUBULAR NECROSIS [None]
  - SLE ARTHRITIS [None]
  - SMALL INTESTINAL OBSTRUCTION [None]
  - URINARY TRACT INFECTION [None]
  - URINARY TRACT OBSTRUCTION [None]
  - WEIGHT DECREASED [None]
  - WEIGHT INCREASED [None]
  - WHITE BLOOD CELL COUNT INCREASED [None]
